FAERS Safety Report 6556947-3 (Version None)
Quarter: 2010Q1

REPORT INFORMATION
  Report Type: 
  Country: None (occurrence: None)
  Receive Date: 20100126
  Receipt Date: 20100114
  Transmission Date: 20100710
  Serious: Yes (Other)
  Sender: FDA-Public Use
  Company Number: 1000011433

PATIENT

DRUGS (1)
  1. ESCITALOPRAM OXALATE [Suspect]
     Dates: start: 20091213

REACTIONS (6)
  - DECREASED INTEREST [None]
  - HYPOAESTHESIA [None]
  - PAIN IN EXTREMITY [None]
  - PSYCHIATRIC SYMPTOM [None]
  - RESTLESSNESS [None]
  - SUICIDAL IDEATION [None]
